FAERS Safety Report 17233102 (Version 1)
Quarter: 2020Q1

REPORT INFORMATION
  Report Type: Spontaneous
  Country: ES (occurrence: ES)
  Receive Date: 20200104
  Receipt Date: 20200104
  Transmission Date: 20200409
  Serious: Yes (Hospitalization)
  Sender: FDA-Public Use
  Company Number: ES-TEVA-2019-ES-1161290

PATIENT
  Age: 74 Year
  Sex: Male

DRUGS (12)
  1. NITROGLICERINA 10 MG/24 H PARCHE TRANSD?RMICO (TIPO 1) [Concomitant]
  2. AMLODIPINO 10 MG COMPRIMIDO [Concomitant]
     Active Substance: AMLODIPINE BESYLATE
  3. FUROSEMIDA 40 MG COMPRIMIDO [Concomitant]
     Active Substance: FUROSEMIDE
  4. JANUMET 50 MG/1.000 MG COMPRIMIDOS RECUBIERTOS CON PELICULA, 56 COMPRI [Concomitant]
  5. ALOPURINOL (318A) [Suspect]
     Active Substance: ALLOPURINOL
     Indication: HYPERURICAEMIA
     Dosage: 300 MG 24 HOURS
     Route: 048
     Dates: start: 20191009, end: 20191024
  6. PANTOPRAZOL 40 MG COMPRIMIDO [Concomitant]
  7. EMCONCOR COR 5 MG COMPRIMIDOS RECUBIERTOS CON PELICULA , 28 COMPRIMIDO [Concomitant]
  8. ATORVASTATINA 40 MG COMPRIMIDO [Concomitant]
  9. TRINOMIA 100 MG/40 MG/5 MG CAPSULAS DURAS 28 C?PSULAS [Concomitant]
  10. CLOPIDOGREL [Concomitant]
     Active Substance: CLOPIDOGREL BISULFATE
  11. ACALKA 1080 MG COMPRIMIDOS DE LIBERACION PROLONGADA , 100 COMPRIMIDOS [Concomitant]
  12. SINTROM [Concomitant]
     Active Substance: ACENOCOUMAROL

REACTIONS (1)
  - Toxic skin eruption [Recovering/Resolving]

NARRATIVE: CASE EVENT DATE: 20191014
